FAERS Safety Report 4357169-7 (Version None)
Quarter: 2004Q2

REPORT INFORMATION
  Report Type: 
  Country: None (occurrence: None)
  Receive Date: 20040511
  Receipt Date: 20040421
  Transmission Date: 20050107
  Serious: Yes (Death, Hospitalization)
  Sender: FDA-Public Use
  Company Number: A03200401250

PATIENT
  Age: 69 Year
  Sex: Male

DRUGS (5)
  1. ELOXATIN [Suspect]
     Indication: RECTAL CANCER
     Dosage: 130 MG/M2 Q3W - INTRAVENOUS NOS
     Route: 042
  2. CAPECITABINE [Concomitant]
  3. BICALUTAMIDE [Concomitant]
  4. LEUPROLIDE ACETATE [Concomitant]
  5. FINASTERIDE [Concomitant]

REACTIONS (17)
  - ASCITES [None]
  - ATRIAL FIBRILLATION [None]
  - BLOOD ALBUMIN DECREASED [None]
  - BLOOD ALKALINE PHOSPHATASE INCREASED [None]
  - BLOOD BILIRUBIN INCREASED [None]
  - DIALYSIS [None]
  - ENCEPHALOPATHY [None]
  - GAMMA-GLUTAMYLTRANSFERASE INCREASED [None]
  - GASTRITIS [None]
  - HAEMANGIOMA OF LIVER [None]
  - HEPATIC FIBROSIS [None]
  - HEPATOTOXICITY [None]
  - PNEUMONIA BACTERIAL [None]
  - PORTAL HYPERTENSION [None]
  - RENAL FAILURE [None]
  - UPPER GASTROINTESTINAL HAEMORRHAGE [None]
  - VENOOCCLUSIVE LIVER DISEASE [None]
